FAERS Safety Report 20029424 (Version 1)
Quarter: 2021Q4

REPORT INFORMATION
  Report Type: Spontaneous
  Country: US (occurrence: US)
  Receive Date: 20211103
  Receipt Date: 20211103
  Transmission Date: 20220303
  Serious: No
  Sender: FDA-Public Use
  Company Number: US-SA-SAC20211102000704

PATIENT
  Sex: Male

DRUGS (1)
  1. DUPIXENT [Suspect]
     Active Substance: DUPILUMAB
     Indication: Nasal polyps
     Dosage: 300 MG, QOW
     Route: 058

REACTIONS (8)
  - Sinusitis [Unknown]
  - Presbyopia [Unknown]
  - Ocular hyperaemia [Unknown]
  - Vision blurred [Unknown]
  - Pain in extremity [Unknown]
  - Ageusia [Unknown]
  - Anosmia [Unknown]
  - Dry eye [Unknown]
